FAERS Safety Report 8519861-X (Version None)
Quarter: 2012Q3

REPORT INFORMATION
  Report Type: 
  Country: None (occurrence: None)
  Receive Date: 20120719
  Receipt Date: 20120710
  Transmission Date: 20120928
  Serious: No
  Sender: FDA-Public Use
  Company Number: US-BIOGENIDEC-2012BI025327

PATIENT
  Sex: Female

DRUGS (1)
  1. TYSABRI [Suspect]
     Indication: MULTIPLE SCLEROSIS
     Route: 042
     Dates: start: 20110913

REACTIONS (9)
  - TREMOR [None]
  - OEDEMA PERIPHERAL [None]
  - HEADACHE [None]
  - FUNGAL INFECTION [None]
  - FALL [None]
  - HYPERHIDROSIS [None]
  - URINARY TRACT INFECTION [None]
  - NIGHTMARE [None]
  - BACK PAIN [None]
